FAERS Safety Report 7554744-3 (Version None)
Quarter: 2011Q2

REPORT INFORMATION
  Report Type: 
  Country: None (occurrence: None)
  Receive Date: 20110617
  Receipt Date: 20110609
  Transmission Date: 20111010
  Serious: Yes (Hospitalization, Other)
  Sender: FDA-Public Use
  Company Number: DE-JNJFOC-20110604162

PATIENT
  Sex: Female

DRUGS (7)
  1. METOPROLOLSUCCINAT HEXAL [Concomitant]
     Route: 065
  2. TORSEMIDE [Concomitant]
     Route: 065
  3. ZOLPIDEM [Concomitant]
     Dosage: 0-0-1
     Route: 048
  4. DURAGESIC-100 [Suspect]
     Indication: PRODUCT USED FOR UNKNOWN INDICATION
     Route: 062
  5. RAMIPRIL [Concomitant]
     Route: 065
  6. CITALOPRAM HYDROBROMIDE [Concomitant]
     Route: 065
  7. PANTOPRAZOLE [Concomitant]
     Route: 065

REACTIONS (3)
  - INSOMNIA [None]
  - HOSPITALISATION [None]
  - HALLUCINATION [None]
